FAERS Safety Report 7485247-2 (Version None)
Quarter: 2011Q2

REPORT INFORMATION
  Report Type: 
  Country: None (occurrence: None)
  Receive Date: 20110517
  Receipt Date: 20101213
  Transmission Date: 20111010
  Serious: Yes (Other)
  Sender: FDA-Public Use
  Company Number: US-BAYER-2010-006130

PATIENT
  Sex: Female

DRUGS (2)
  1. YASMIN [Suspect]
     Dosage: UNK
     Dates: start: 20050101, end: 20070101
  2. YAZ [Suspect]
     Dosage: UNK
     Dates: start: 20050101, end: 20070101

REACTIONS (3)
  - CHOLELITHIASIS [None]
  - FEAR [None]
  - ABDOMINAL PAIN [None]
